FAERS Safety Report 6480539-8 (Version None)
Quarter: 2009Q4

REPORT INFORMATION
  Report Type: 
  Country: None (occurrence: None)
  Receive Date: 20091208
  Receipt Date: 20091127
  Transmission Date: 20100525
  Serious: Yes (Life-Threatening)
  Sender: FDA-Public Use
  Company Number: HR-SOLVAY-00309007393

PATIENT
  Age: 20249 Day
  Sex: Male
  Weight: 90 kg

DRUGS (1)
  1. ANDROGEL [Suspect]
     Indication: TESTICULAR DISORDER
     Dosage: DAILY DOSE: 50 MILLIGRAM(S), VIA SACHET.
     Route: 061
     Dates: start: 20090803, end: 20090825

REACTIONS (2)
  - CHEST PAIN [None]
  - TACHYCARDIA [None]
